FAERS Safety Report 11001269 (Version 1)
Quarter: 2015Q2

REPORT INFORMATION
  Report Type: Spontaneous
  Country: US (occurrence: US)
  Receive Date: 20150408
  Receipt Date: 20150408
  Transmission Date: 20150821
  Serious: No
  Sender: FDA-Public Use
  Company Number: US-SA-2015SA021319

PATIENT
  Age: 58 Year
  Sex: Female

DRUGS (7)
  1. ALLEGRA [Suspect]
     Active Substance: FEXOFENADINE HYDROCHLORIDE
     Indication: RASH
     Dosage: CONSUMER PROVIDED AN UPDATED LOT #, EL070C. SHE SAID THAT ONE OF THE ZEROS MAY BE AN ^O.^
     Route: 048
  2. ALLEGRA [Suspect]
     Active Substance: FEXOFENADINE HYDROCHLORIDE
     Indication: LACRIMATION INCREASED
     Dosage: CONSUMER PROVIDED AN UPDATED LOT #, EL070C. SHE SAID THAT ONE OF THE ZEROS MAY BE AN ^O.^
     Route: 048
  3. ALLEGRA [Suspect]
     Active Substance: FEXOFENADINE HYDROCHLORIDE
     Indication: OCULAR HYPERAEMIA
     Dosage: CONSUMER PROVIDED AN UPDATED LOT #, EL070C. SHE SAID THAT ONE OF THE ZEROS MAY BE AN ^O.^
     Route: 048
  4. ALLEGRA [Suspect]
     Active Substance: FEXOFENADINE HYDROCHLORIDE
     Indication: MULTIPLE ALLERGIES
     Dosage: CONSUMER PROVIDED AN UPDATED LOT #, EL070C. SHE SAID THAT ONE OF THE ZEROS MAY BE AN ^O.^
     Route: 048
  5. ALLEGRA [Suspect]
     Active Substance: FEXOFENADINE HYDROCHLORIDE
     Indication: RHINORRHOEA
     Dosage: CONSUMER PROVIDED AN UPDATED LOT #, EL070C. SHE SAID THAT ONE OF THE ZEROS MAY BE AN ^O.^
     Route: 048
  6. ALLEGRA [Suspect]
     Active Substance: FEXOFENADINE HYDROCHLORIDE
     Indication: PRURITUS
     Dosage: CONSUMER PROVIDED AN UPDATED LOT #, EL070C. SHE SAID THAT ONE OF THE ZEROS MAY BE AN ^O.^
     Route: 048
  7. ALLEGRA [Suspect]
     Active Substance: FEXOFENADINE HYDROCHLORIDE
     Indication: NASAL CONGESTION
     Dosage: CONSUMER PROVIDED AN UPDATED LOT #, EL070C. SHE SAID THAT ONE OF THE ZEROS MAY BE AN ^O.^
     Route: 048

REACTIONS (1)
  - Drug ineffective [Unknown]
